FAERS Safety Report 20533255 (Version 1)
Quarter: 2022Q1

REPORT INFORMATION
  Report Type: Spontaneous
  Country: US (occurrence: None)
  Receive Date: 20220301
  Receipt Date: 20220301
  Transmission Date: 20220423
  Serious: Yes (Other)
  Sender: FDA-Public Use
  Company Number: None

PATIENT
  Age: 42 Year
  Sex: Female
  Weight: 76.5 kg

DRUGS (2)
  1. OXYCODONE HYDROCHLORIDE [Suspect]
     Active Substance: OXYCODONE HYDROCHLORIDE
     Indication: Restless legs syndrome
     Dosage: OTHER QUANTITY : 120 TABLET(S);?FREQUENCY : EVERY 6 HOURS;?
     Route: 048
  2. OXYCODONE HYDROCHLORIDE [Suspect]
     Active Substance: OXYCODONE HYDROCHLORIDE
     Indication: Pain

REACTIONS (9)
  - Manufacturing product shipping issue [None]
  - Abdominal pain [None]
  - Drug ineffective [None]
  - Product quality issue [None]
  - Gastrointestinal disorder [None]
  - Frequent bowel movements [None]
  - Product quality issue [None]
  - Therapy interrupted [None]
  - Muscle spasms [None]

NARRATIVE: CASE EVENT DATE: 20220228
